FAERS Safety Report 7604571-3 (Version None)
Quarter: 2011Q3

REPORT INFORMATION
  Report Type: 
  Country: None (occurrence: None)
  Receive Date: 20110712
  Receipt Date: 20110704
  Transmission Date: 20111222
  Serious: Yes (Hospitalization, Other)
  Sender: FDA-Public Use
  Company Number: CA-PFIZER INC-2011137127

PATIENT
  Age: 75 Year
  Sex: Female

DRUGS (5)
  1. COMBIGAN [Concomitant]
     Indication: GLAUCOMA
     Dosage: UNK
  2. TRUSOPT [Concomitant]
     Indication: GLAUCOMA
     Dosage: UNK
  3. TRIAZIDE [Concomitant]
     Indication: HYPERTENSION
     Dosage: 25 MG, 1X/DAY
  4. XALATAN [Suspect]
     Indication: GLAUCOMA
     Dosage: 1 GTT, 1X/DAY AT BEDTIME
     Route: 047
     Dates: start: 20060101
  5. NORVASC [Concomitant]
     Indication: HYPERTENSION
     Dosage: 10 MG, 1X/DAY

REACTIONS (2)
  - HYPOAESTHESIA [None]
  - DIABETES MELLITUS [None]
